FAERS Safety Report 20190074 (Version 3)
Quarter: 2022Q1

REPORT INFORMATION
  Report Type: Report from Study
  Country: PT (occurrence: PT)
  Receive Date: 20211215
  Receipt Date: 20220208
  Transmission Date: 20220423
  Serious: Yes (Hospitalization, Disabling, Other)
  Sender: FDA-Public Use
  Company Number: PT-PFIZER INC-202101725673

PATIENT
  Age: 79 Year
  Sex: Female
  Weight: 64 kg

DRUGS (5)
  1. TAFAMIDIS [Suspect]
     Active Substance: TAFAMIDIS
     Indication: Cardiac amyloidosis
     Dosage: 61 MG
     Route: 048
     Dates: start: 20191113
  2. FUROSEMIDE [Concomitant]
     Active Substance: FUROSEMIDE
     Indication: Cardiac failure
     Dosage: 120 MG
     Route: 048
     Dates: start: 201804
  3. RIVAROXABAN [Concomitant]
     Active Substance: RIVAROXABAN
     Indication: Atrial fibrillation
     Dosage: 15 MG
     Route: 048
     Dates: start: 2015
  4. LEVOTHYROXINE [Concomitant]
     Active Substance: LEVOTHYROXINE
     Indication: Hypothyroidism
     Dosage: 0.088 MG
     Route: 048
  5. LOPERAMIDE [Concomitant]
     Active Substance: LOPERAMIDE
     Indication: Diarrhoea
     Dosage: 4-6 MG, 1X/DAY
     Route: 048
     Dates: start: 20191003

REACTIONS (3)
  - Anaemia macrocytic [Not Recovered/Not Resolved]
  - Thrombocytopenia [Not Recovered/Not Resolved]
  - Neutrophil Pelger-Huet anomaly present [Not Recovered/Not Resolved]

NARRATIVE: CASE EVENT DATE: 20211130
